FAERS Safety Report 20472635 (Version 4)
Quarter: 2022Q2

REPORT INFORMATION
  Report Type: Spontaneous
  Country: None (occurrence: US)
  Receive Date: 20220215
  Receipt Date: 20220406
  Transmission Date: 20220721
  Serious: Yes (Life-Threatening, Other)
  Sender: FDA-Public Use
  Company Number: US-Y-mAbs Therapeutics-2125890

PATIENT
  Age: 20 Year
  Sex: Female

DRUGS (15)
  1. DANYELZA [Suspect]
     Active Substance: NAXITAMAB-GQGK
     Indication: Neuroblastoma recurrent
     Route: 042
     Dates: start: 202112
  2. LORAZEPAM [Concomitant]
     Active Substance: LORAZEPAM
     Dates: start: 20220110
  3. DILAUDID [Concomitant]
     Active Substance: HYDROMORPHONE HYDROCHLORIDE
     Route: 042
     Dates: start: 20220110
  4. KEPPRA XR [Concomitant]
     Active Substance: LEVETIRACETAM
     Dates: start: 20220110
  5. CITRIC BUFFERED NORMAL SALINE [Concomitant]
     Active Substance: ANHYDROUS CITRIC ACID
     Dates: start: 20220110
  6. PLATELETS [Concomitant]
     Active Substance: HUMAN PLATELET, ALLOGENIC
     Dates: start: 20220110
  7. METHYLPREDNISOLONE [Concomitant]
     Active Substance: METHYLPREDNISOLONE
  8. ALBUTEROL [Concomitant]
     Active Substance: ALBUTEROL
  9. CETIRIZINE [Concomitant]
     Active Substance: CETIRIZINE HYDROCHLORIDE
  10. DILAUDID [Concomitant]
     Active Substance: HYDROMORPHONE HYDROCHLORIDE
  11. LYRICA [Concomitant]
     Active Substance: PREGABALIN
  12. KEPPRA [Concomitant]
     Active Substance: LEVETIRACETAM
  13. OXYGEN [Concomitant]
     Active Substance: OXYGEN
  14. Precidex [Concomitant]
  15. ATIVAN [Concomitant]
     Active Substance: LORAZEPAM

REACTIONS (14)
  - Hypotension [Recovered/Resolved]
  - Hypertension [Recovered/Resolved]
  - Pain [Recovered/Resolved]
  - Throat irritation [Recovered/Resolved]
  - Oropharyngeal pain [Recovered/Resolved]
  - Altered state of consciousness [Recovered/Resolved]
  - Dyspnoea [Recovered/Resolved]
  - Respiratory rate decreased [Unknown]
  - Infusion related reaction [Recovered/Resolved]
  - Hypertension [Recovered/Resolved]
  - Pain [Recovered/Resolved]
  - Blood pressure fluctuation [Recovered/Resolved]
  - Hypotension [Recovered/Resolved with Sequelae]
  - Seizure [Recovered/Resolved]

NARRATIVE: CASE EVENT DATE: 20211201
